FAERS Safety Report 21180046 (Version 1)
Quarter: 2022Q3

REPORT INFORMATION
  Report Type: Spontaneous
  Country: US (occurrence: None)
  Receive Date: 20220805
  Receipt Date: 20220805
  Transmission Date: 20221027
  Serious: Yes (Hospitalization)
  Sender: FDA-Public Use
  Company Number: None

PATIENT
  Age: 10 Year
  Sex: Female

DRUGS (8)
  1. PULMOZYME [Suspect]
     Active Substance: DORNASE ALFA
     Indication: Cystic fibrosis
     Dosage: OTHER QUANTITY : 2.5MG/2.5ML;?FREQUENCY : DAILY;?INHALE 1 AMPULE (2.5 MG) VIA NEBULIZER DAILY?
     Route: 055
     Dates: start: 20220329
  2. PULMOZYME [Suspect]
     Active Substance: DORNASE ALFA
     Dosage: OTHER QUANTITY : 1 AMPULE;?FREQUENCY : DAILY;?OTHER ROUTE : VIA NEBULIZIER;?
     Route: 050
  3. AEROCHAMBER PLUS WITH M-PIECE [Concomitant]
  4. ALBUTEROL [Concomitant]
     Active Substance: ALBUTEROL
  5. COMPLETE FORM CHEW ORNGE [Concomitant]
  6. HYPERSAL [Concomitant]
  7. VITAMIN D2 [Concomitant]
     Active Substance: ERGOCALCIFEROL
  8. ZENPEP [Concomitant]
     Active Substance: PANCRELIPASE AMYLASE\PANCRELIPASE LIPASE\PANCRELIPASE PROTEASE

REACTIONS (2)
  - Pancreatitis [None]
  - Therapy interrupted [None]

NARRATIVE: CASE EVENT DATE: 20220715
